FAERS Safety Report 4509635-9 (Version None)
Quarter: 2004Q4

REPORT INFORMATION
  Report Type: 
  Country: None (occurrence: None)
  Receive Date: 20041124
  Receipt Date: 20041116
  Transmission Date: 20050328
  Serious: Yes (Hospitalization)
  Sender: FDA-Public Use
  Company Number: 200412617DE

PATIENT
  Age: 12 Year
  Sex: Male
  Weight: 41.8 kg

DRUGS (3)
  1. TELFAST [Suspect]
     Indication: ASTHMA
     Route: 048
     Dates: start: 20040811, end: 20040801
  2. ALLERGOSPASMIN [Concomitant]
     Indication: ASTHMA
     Dosage: DOSE UNIT: UNITS
     Route: 055
  3. ALLERGOSPASMIN [Concomitant]
     Indication: SEASONAL ALLERGY
     Dosage: DOSE UNIT: UNITS
     Route: 055

REACTIONS (2)
  - ASTHMA [None]
  - CONDITION AGGRAVATED [None]
